FAERS Safety Report 13077890 (Version 11)
Quarter: 2017Q3

REPORT INFORMATION
  Report Type: Report from Study
  Country: TW (occurrence: TW)
  Receive Date: 20170102
  Receipt Date: 20170704
  Transmission Date: 20171127
  Serious: Yes (Hospitalization)
  Sender: FDA-Public Use
  Company Number: TW-ROCHE-1872444

PATIENT
  Age: 72 Year
  Sex: Male
  Weight: 64.9 kg

DRUGS (40)
  1. BISOPROLOL [Concomitant]
     Active Substance: BISOPROLOL
     Indication: HYPERTENSION
     Route: 048
     Dates: start: 20160308
  2. VALPROATE SODIUM. [Concomitant]
     Active Substance: VALPROATE SODIUM
     Route: 048
     Dates: start: 20161227, end: 20161228
  3. VALPROATE SODIUM. [Concomitant]
     Active Substance: VALPROATE SODIUM
     Route: 048
     Dates: start: 20170303, end: 20170310
  4. CEFAZOLIN SODIUM. [Concomitant]
     Active Substance: CEFAZOLIN SODIUM
     Route: 042
     Dates: start: 20161226, end: 20161228
  5. CODEINE PHOSPHATE [Concomitant]
     Active Substance: CODEINE PHOSPHATE
     Dosage: POST OPERATION PAIN CONTROL
     Route: 030
     Dates: start: 20170302, end: 20170305
  6. D-MANNITOL [Concomitant]
     Active Substance: MANNITOL
     Dosage: REDUCTION OF RAISED INTRACRANIAL PRESSURE
     Route: 042
     Dates: start: 20170302, end: 20170302
  7. BEVACIZUMAB. [Suspect]
     Active Substance: BEVACIZUMAB
     Indication: RENAL CELL CARCINOMA
     Dosage: MOST RECENT DOSE: 11/MAY/2016 AT 985.5 MG?STARTING DOSE AS PER PROTOCOL?MOST RECENT DOSE OF BEVACIZU
     Route: 042
     Dates: start: 20151106
  8. AMLODIPINE [Concomitant]
     Active Substance: AMLODIPINE BESYLATE
     Route: 048
     Dates: start: 20170304
  9. ACETAMINOPHEN. [Concomitant]
     Active Substance: ACETAMINOPHEN
     Indication: PAIN
     Route: 048
     Dates: start: 20161227, end: 20170105
  10. ACETAMINOPHEN. [Concomitant]
     Active Substance: ACETAMINOPHEN
     Route: 048
     Dates: start: 20170417, end: 20170430
  11. PANTOPRAZOLE [Concomitant]
     Active Substance: PANTOPRAZOLE
     Indication: GASTRIC ULCER
     Route: 042
     Dates: start: 20161227, end: 20161228
  12. ESOMEPRAZOLE [Concomitant]
     Active Substance: ESOMEPRAZOLE
     Dosage: STRESSFUL GASTRIC ULCER
     Route: 048
     Dates: start: 20170303, end: 20170305
  13. NICARDIPINE HCL [Concomitant]
     Active Substance: NICARDIPINE HYDROCHLORIDE
     Indication: HYPERTENSION
     Route: 030
     Dates: start: 20170302, end: 20170310
  14. BETHANECHOL [Concomitant]
     Active Substance: BETHANECHOL
     Indication: URINARY RETENTION
     Route: 065
     Dates: start: 20170420, end: 20170502
  15. ULTRACET [Concomitant]
     Active Substance: ACETAMINOPHEN\TRAMADOL HYDROCHLORIDE
     Indication: OROPHARYNGEAL PAIN
  16. PROPYLTHIOURACIL. [Concomitant]
     Active Substance: PROPYLTHIOURACIL
     Indication: HYPERTHYROIDISM
     Route: 048
     Dates: start: 20160308
  17. CEFAZOLIN SODIUM. [Concomitant]
     Active Substance: CEFAZOLIN SODIUM
     Route: 042
     Dates: start: 20170302, end: 20170305
  18. MAGNESIUM OXIDE. [Concomitant]
     Active Substance: MAGNESIUM OXIDE
     Indication: CONSTIPATION
     Route: 048
     Dates: start: 20161227, end: 20170105
  19. ESOMEPRAZOLE [Concomitant]
     Active Substance: ESOMEPRAZOLE
     Indication: GASTRIC ULCER
     Route: 042
     Dates: start: 20170302, end: 20170303
  20. SILODOSIN [Concomitant]
     Active Substance: SILODOSIN
     Indication: BENIGN PROSTATIC HYPERPLASIA
     Route: 048
     Dates: start: 20151125
  21. AMLODIPINE [Concomitant]
     Active Substance: AMLODIPINE BESYLATE
     Indication: HYPERTENSION
     Route: 048
     Dates: start: 20151216
  22. CODEINE PHOSPHATE [Concomitant]
     Active Substance: CODEINE PHOSPHATE
     Indication: PAIN
     Route: 042
     Dates: start: 20161227, end: 20161229
  23. EPINEPHRINE. [Concomitant]
     Active Substance: EPINEPHRINE
     Route: 042
     Dates: start: 20170302, end: 20170302
  24. ATEZOLIZUMAB. [Suspect]
     Active Substance: ATEZOLIZUMAB
     Indication: RENAL CELL CARCINOMA
     Dosage: MOST RECENT DOSE: 07/DEC/2016 AT 1200 MG, 08/FEB/2017?STARTING DOSE AS PER PROTOCOL?MOST RECENT DOSE
     Route: 042
     Dates: start: 20151106
  25. VALPROATE SODIUM. [Concomitant]
     Active Substance: VALPROATE SODIUM
     Indication: EPILEPSY
     Route: 048
     Dates: start: 20161229, end: 20170205
  26. METOCLOPRAMIDE. [Concomitant]
     Active Substance: METOCLOPRAMIDE
     Indication: ABDOMINAL PAIN UPPER
     Route: 048
     Dates: start: 20170106, end: 20170119
  27. SILODOSIN [Concomitant]
     Active Substance: SILODOSIN
     Route: 065
     Dates: start: 20170420
  28. CLONAZEPAM. [Concomitant]
     Active Substance: CLONAZEPAM
     Indication: ANXIETY
     Route: 048
     Dates: start: 20170206, end: 20170305
  29. ACETAMINOPHEN. [Concomitant]
     Active Substance: ACETAMINOPHEN
     Indication: SEPSIS
     Route: 048
     Dates: start: 20170302, end: 20170310
  30. DEXAMETHASONE. [Concomitant]
     Active Substance: DEXAMETHASONE
     Indication: ULCER
     Route: 048
  31. ALPRAZOLAM. [Concomitant]
     Active Substance: ALPRAZOLAM
     Indication: INSOMNIA
     Route: 048
     Dates: start: 20151125
  32. DUTASTERIDE. [Concomitant]
     Active Substance: DUTASTERIDE
     Indication: BENIGN PROSTATIC HYPERPLASIA
     Dosage: BENIGN PROSTATIC HYPERPLASIA
     Route: 048
     Dates: start: 20170304
  33. OXYBUTYNIN [Concomitant]
     Active Substance: OXYBUTYNIN
     Indication: BENIGN PROSTATIC HYPERPLASIA
     Dosage: REPORTED AS: OXYBUTYNIN ER
     Route: 048
     Dates: start: 20160309
  34. VALPROATE SODIUM. [Concomitant]
     Active Substance: VALPROATE SODIUM
     Dosage: REDUCTION OF RAISED INTRACRANIAL PRESSURE
     Route: 042
     Dates: start: 20170302, end: 20170303
  35. D-MANNITOL [Concomitant]
     Active Substance: MANNITOL
     Route: 042
     Dates: start: 20161226, end: 20161228
  36. INDOCYANINE GREEN. [Concomitant]
     Active Substance: INDOCYANINE GREEN
     Route: 042
     Dates: start: 20170302, end: 20170302
  37. FLUOROMETHOLONE. [Concomitant]
     Active Substance: FLUOROMETHOLONE
     Route: 065
  38. DUTASTERIDE. [Concomitant]
     Active Substance: DUTASTERIDE
     Indication: BENIGN PROSTATIC HYPERPLASIA
     Route: 048
     Dates: start: 20151125
  39. SILODOSIN [Concomitant]
     Active Substance: SILODOSIN
     Indication: URINARY RETENTION
     Dosage: BENIGN PROSTATE HYPERTROPHY
     Route: 048
     Dates: start: 20170304
  40. VALPROATE SODIUM. [Concomitant]
     Active Substance: VALPROATE SODIUM
     Route: 048
     Dates: start: 20170302, end: 20170302

REACTIONS (2)
  - Sepsis [Recovered/Resolved]
  - Gliosis [Recovered/Resolved]

NARRATIVE: CASE EVENT DATE: 20161227
